FAERS Safety Report 24924341 (Version 3)
Quarter: 2025Q2

REPORT INFORMATION
  Report Type: Report from Study
  Country: JP (occurrence: JP)
  Receive Date: 20250204
  Receipt Date: 20250611
  Transmission Date: 20250717
  Serious: Yes (Other)
  Sender: SHIONOGI
  Company Number: JP-shionogi-202400003191

PATIENT
  Age: 64 Year
  Sex: Female
  Weight: 45.5 kg

DRUGS (8)
  1. CEFIDEROCOL [Suspect]
     Active Substance: CEFIDEROCOL
     Indication: Abdominal abscess
     Route: 041
     Dates: start: 20241122, end: 20241202
  2. CEFTRIAXONE SODIUM [Concomitant]
     Active Substance: CEFTRIAXONE SODIUM
     Indication: Abdominal abscess
     Route: 065
     Dates: start: 20241116, end: 20241117
  3. MEROPENEM [Concomitant]
     Active Substance: MEROPENEM
     Indication: Abdominal abscess
     Route: 065
     Dates: start: 20241118, end: 20241122
  4. VANCOMYCIN [Concomitant]
     Active Substance: VANCOMYCIN
     Indication: Abdominal abscess
     Route: 065
     Dates: start: 20241122, end: 20241207
  5. BIOFERMIN [BIFIDOBACTERIUM BIFIDUM] [Concomitant]
     Indication: Prophylaxis
     Route: 048
     Dates: end: 20241127
  6. LANSOPRAZOLE [Concomitant]
     Active Substance: LANSOPRAZOLE
     Indication: Product used for unknown indication
     Route: 048
  7. EDOXABAN TOSYLATE [Concomitant]
     Active Substance: EDOXABAN TOSYLATE
     Indication: Product used for unknown indication
     Route: 048
  8. LOPERAMIDE HYDROCHLORIDE [Concomitant]
     Active Substance: LOPERAMIDE HYDROCHLORIDE
     Indication: Diarrhoea
     Route: 048

REACTIONS (2)
  - Alanine aminotransferase increased [Recovered/Resolved]
  - Aspartate aminotransferase increased [Recovered/Resolved]

NARRATIVE: CASE EVENT DATE: 20241201
